FAERS Safety Report 11942576 (Version 2)
Quarter: 2016Q1

REPORT INFORMATION
  Report Type: Report from Study
  Country: DE (occurrence: DE)
  Receive Date: 20160125
  Receipt Date: 20160126
  Transmission Date: 20160526
  Serious: Yes (Hospitalization)
  Sender: FDA-Public Use
  Company Number: DE-ROCHE-1647988

PATIENT
  Age: 38 Year
  Sex: Male

DRUGS (9)
  1. RANITIDIN [Concomitant]
     Active Substance: RANITIDINE HYDROCHLORIDE
  2. VEMURAFENIB [Suspect]
     Active Substance: VEMURAFENIB
     Route: 048
     Dates: start: 20151029
  3. VEMURAFENIB [Suspect]
     Active Substance: VEMURAFENIB
     Indication: MALIGNANT MELANOMA
     Dosage: DATE OF LAST DOSE PRIOR TO SAE: 10/OCT/2015
     Route: 048
     Dates: start: 20151006, end: 20151016
  4. DEXAMETHASON [Concomitant]
     Active Substance: DEXAMETHASONE
     Route: 065
     Dates: start: 20150923, end: 20151005
  5. PANTOPRAZOL [Concomitant]
     Active Substance: PANTOPRAZOLE SODIUM
     Route: 065
     Dates: start: 20150923, end: 20151005
  6. PANTOPRAZOL [Concomitant]
     Active Substance: PANTOPRAZOLE SODIUM
     Route: 065
     Dates: start: 20151019
  7. COBIMETINIB [Suspect]
     Active Substance: COBIMETINIB
     Indication: MALIGNANT MELANOMA
     Dosage: DATE OF LAST DOSE PRIOR TO SAE: 10/OCT/2015
     Route: 048
     Dates: start: 20151007, end: 20151015
  8. COBIMETINIB [Suspect]
     Active Substance: COBIMETINIB
     Dosage: DATE OF LAST DOSE PRIOR TO SAE: 10/OCT/2015
     Route: 048
     Dates: start: 20151030
  9. SODERM [Concomitant]
     Route: 065
     Dates: start: 20151015, end: 20151019

REACTIONS (1)
  - Hypersensitivity [Recovered/Resolved]

NARRATIVE: CASE EVENT DATE: 20151011
